FAERS Safety Report 5155488-8 (Version None)
Quarter: 2006Q4

REPORT INFORMATION
  Report Type: 
  Country: None (occurrence: None)
  Receive Date: 20061121
  Receipt Date: 20061116
  Transmission Date: 20070319
  Serious: Yes (Other)
  Sender: FDA-Public Use
  Company Number: ZW-BOEHRINGER INGELHEIM PHARMACEUTICALS, INC.-2006-DE-06089GD

PATIENT

DRUGS (3)
  1. NEVIRAPINE [Suspect]
     Indication: ACQUIRED IMMUNODEFICIENCY SYNDROME
  2. ZIDOVUDINE [Suspect]
     Indication: ACQUIRED IMMUNODEFICIENCY SYNDROME
  3. LAMIVUDINE [Suspect]
     Indication: ACQUIRED IMMUNODEFICIENCY SYNDROME

REACTIONS (15)
  - ANAEMIA [None]
  - DIARRHOEA [None]
  - GASTROINTESTINAL DISORDER [None]
  - HEPATOTOXICITY [None]
  - HERPES ZOSTER [None]
  - KAPOSI'S SARCOMA [None]
  - NAUSEA [None]
  - NERVOUS SYSTEM DISORDER [None]
  - NEUROPATHY PERIPHERAL [None]
  - PNEUMOCYSTIS JIROVECI PNEUMONIA [None]
  - PNEUMONIA [None]
  - PULMONARY TUBERCULOSIS [None]
  - RASH [None]
  - SKIN DISORDER [None]
  - VOMITING [None]
